FAERS Safety Report 6906607-1 (Version None)
Quarter: 2010Q3

REPORT INFORMATION
  Report Type: 
  Country: None (occurrence: None)
  Receive Date: 20100804
  Receipt Date: 20100719
  Transmission Date: 20110219
  Serious: Yes (Hospitalization, Other)
  Sender: FDA-Public Use
  Company Number: GB-BAYER-201033701GPV

PATIENT
  Sex: Female

DRUGS (2)
  1. MIRENA [Suspect]
     Indication: PRODUCT USED FOR UNKNOWN INDICATION
     Route: 015
  2. INSTILLAGEL [Suspect]
     Indication: PRODUCT USED FOR UNKNOWN INDICATION

REACTIONS (3)
  - ANAPHYLACTIC SHOCK [None]
  - RASH PRURITIC [None]
  - VULVOVAGINAL BURNING SENSATION [None]
